FAERS Safety Report 6080882-0 (Version None)
Quarter: 2009Q1

REPORT INFORMATION
  Report Type: 
  Country: None (occurrence: None)
  Receive Date: 20090217
  Receipt Date: 20090205
  Transmission Date: 20090719
  Serious: Yes (Other)
  Sender: FDA-Public Use
  Company Number: FR-ROXANE LABORATORIES, INC.-2009-RO-00117RO

PATIENT
  Age: 55 Year
  Sex: Male

DRUGS (5)
  1. AZATHIOPRINE [Suspect]
     Indication: CROHN'S DISEASE
     Dates: start: 20040407
  2. AZATHIOPRINE [Suspect]
     Dates: start: 20040428
  3. MERCAPTOPURINE [Suspect]
     Indication: CROHN'S DISEASE
     Dosage: 100MG
     Route: 048
     Dates: start: 20040512
  4. MORPHINE-DERIVED TREATMENT [Concomitant]
     Indication: ARTHRITIS
  5. ANTI-TNF ALPHA [Concomitant]
     Indication: ACUTE FEBRILE NEUTROPHILIC DERMATOSIS
     Route: 042
     Dates: start: 20040422

REACTIONS (14)
  - ACUTE FEBRILE NEUTROPHILIC DERMATOSIS [None]
  - ARTHRALGIA [None]
  - ARTHRITIS [None]
  - CONJUNCTIVITIS [None]
  - CROHN'S DISEASE [None]
  - DERMATITIS BULLOUS [None]
  - DISEASE RECURRENCE [None]
  - FATIGUE [None]
  - MALAISE [None]
  - ORAL MUCOSAL ERUPTION [None]
  - PAIN IN EXTREMITY [None]
  - PAIN OF SKIN [None]
  - PYREXIA [None]
  - RASH PAPULAR [None]
